FAERS Safety Report 4340715-7 (Version None)
Quarter: 2004Q2

REPORT INFORMATION
  Report Type: 
  Country: None (occurrence: None)
  Receive Date: 20040413
  Receipt Date: 20040331
  Transmission Date: 20050107
  Serious: Yes (Hospitalization)
  Sender: FDA-Public Use
  Company Number: 2004UW06441

PATIENT
  Age: 68 Year
  Sex: Female

DRUGS (2)
  1. CRESTOR [Suspect]
     Dosage: 20 MG QD PO
     Route: 048
  2. LIPITOR [Concomitant]

REACTIONS (2)
  - PLEURAL EFFUSION [None]
  - WHITE BLOOD CELL COUNT INCREASED [None]
